FAERS Safety Report 12895651 (Version 1)
Quarter: 2016Q4

REPORT INFORMATION
  Report Type: Spontaneous
  Country: CA (occurrence: CA)
  Receive Date: 20161031
  Receipt Date: 20161031
  Transmission Date: 20170207
  Serious: Yes (Congenital Anomaly)
  Sender: FDA-Public Use
  Company Number: CA-APOTEX-2016AP014050

PATIENT
  Age: 3 Year
  Sex: Male

DRUGS (1)
  1. PAXIL [Suspect]
     Active Substance: PAROXETINE HYDROCHLORIDE
     Indication: ELECTROLYTE IMBALANCE
     Dosage: 20 MG, QD
     Route: 065

REACTIONS (1)
  - Language disorder [Unknown]
